FAERS Safety Report 6042034-X (Version None)
Quarter: 2009Q1

REPORT INFORMATION
  Report Type: 
  Country: None (occurrence: None)
  Receive Date: 20090116
  Receipt Date: 20090115
  Transmission Date: 20090719
  Serious: Yes (Death)
  Sender: FDA-Public Use
  Company Number: CA-ASTRAZENECA-2009UW01281

PATIENT
  Age: 60 Year
  Sex: Male
  Weight: 79.4 kg

DRUGS (6)
  1. CRESTOR [Suspect]
     Route: 048
  2. APO-RAMIPRIL [Concomitant]
  3. ARTHROTEC [Concomitant]
  4. ASPIRIN [Concomitant]
  5. DICLOFENAC [Concomitant]
  6. MISOPROSTOL [Concomitant]

REACTIONS (5)
  - DYSPNOEA [None]
  - FLUSHING [None]
  - LOSS OF CONSCIOUSNESS [None]
  - MALAISE [None]
  - PALLOR [None]
